FAERS Safety Report 6781492-X (Version None)
Quarter: 2010Q2

REPORT INFORMATION
  Report Type: 
  Country: None (occurrence: None)
  Receive Date: 20100621
  Receipt Date: 20100610
  Transmission Date: 20101027
  Serious: Yes (Hospitalization)
  Sender: FDA-Public Use
  Company Number: KR-PFIZER INC-2010073121

PATIENT
  Age: 56 Year
  Sex: Male
  Weight: 53.5 kg

DRUGS (9)
  1. SUNITINIB MALATE [Suspect]
     Indication: HEPATIC NEOPLASM MALIGNANT
     Dosage: 25 MG, 1X/DAY
     Route: 048
     Dates: start: 20100225
  2. LACTULOSE [Concomitant]
     Indication: CONSTIPATION
     Dosage: UNK
     Dates: start: 20091216
  3. ISOLEUCINE/LEUCINE/VALINE [Concomitant]
     Indication: LIVER DISORDER
     Dosage: UNK
     Dates: start: 20100211
  4. FILGRASTIM [Concomitant]
     Indication: NEUTROPHIL COUNT
     Dosage: UNK
     Dates: start: 20100318
  5. NOVOMIX [Concomitant]
     Indication: DIABETES MELLITUS
     Dosage: UNK
     Dates: start: 20100128
  6. GARLIC [Concomitant]
     Indication: LIVER DISORDER
     Dosage: UNK
     Dates: start: 20091216
  7. SPIRONOLACTONE [Concomitant]
     Indication: ASCITES
     Dosage: UNK
     Dates: start: 20091222
  8. CIPROFLOXACIN [Concomitant]
     Indication: INFECTION
     Dosage: UNK
     Dates: start: 20091216
  9. PROPRANOLOL [Concomitant]
     Indication: PAIN
     Dosage: UNK
     Dates: start: 20091216

REACTIONS (1)
  - BLEEDING VARICOSE VEIN [None]
